FAERS Safety Report 5576276-4 (Version None)
Quarter: 2007Q4

REPORT INFORMATION
  Report Type: 
  Country: None (occurrence: None)
  Receive Date: 20071228
  Receipt Date: 20071220
  Transmission Date: 20080405
  Serious: Yes (Death)
  Sender: FDA-Public Use
  Company Number: DE-ROCHE-537892

PATIENT
  Age: 41 Year
  Sex: Male
  Weight: 72.9 kg

DRUGS (3)
  1. CAPECITABINE [Suspect]
     Indication: METASTATIC GASTRIC CANCER
     Route: 065
     Dates: start: 20071002, end: 20071217
  2. DOCETAXEL [Suspect]
     Indication: METASTATIC GASTRIC CANCER
     Dosage: FREQUENCY REPORTED AS 1,8,22. INFUSION OVER 2 HOURS.
     Route: 042
     Dates: start: 20071002, end: 20071217
  3. OXALIPLATIN [Suspect]
     Indication: METASTATIC GASTRIC CANCER
     Dosage: FREQUENCY REPORTED AS: 1,8,22. INFUSION OVER 2 HOURS.
     Route: 042
     Dates: start: 20071002, end: 20071017

REACTIONS (1)
  - DEATH [None]
